FAERS Safety Report 9654125 (Version 2)
Quarter: 2014Q3

REPORT INFORMATION
  Report Type: Spontaneous
  Country: US (occurrence: US)
  Receive Date: 20131029
  Receipt Date: 20140731
  Transmission Date: 20150326
  Serious: Yes (Hospitalization, Other)
  Sender: FDA-Public Use
  Company Number: US-009507513-1310USA012780

PATIENT
  Sex: Female

DRUGS (1)
  1. NUVARING [Suspect]
     Active Substance: ETHINYL ESTRADIOL\ETONOGESTREL
     Indication: CONTRACEPTION
     Dosage: UNK
     Route: 067
     Dates: start: 200605, end: 20081115

REACTIONS (10)
  - Treatment noncompliance [Unknown]
  - Blood thyroid stimulating hormone increased [Unknown]
  - Anaemia [Unknown]
  - Pulmonary embolism [Recovering/Resolving]
  - Hypothyroidism [Unknown]
  - Bipolar disorder [Unknown]
  - Diabetic ketoacidosis [Recovered/Resolved]
  - Type 1 diabetes mellitus [Unknown]
  - Thrombocytopenia [Unknown]
  - Liver function test abnormal [Unknown]

NARRATIVE: CASE EVENT DATE: 200811
